FAERS Safety Report 8300343-5 (Version None)
Quarter: 2012Q1

REPORT INFORMATION
  Report Type: 
  Country: None (occurrence: None)
  Receive Date: 20120326
  Receipt Date: 20110628
  Transmission Date: 20120608
  Serious: Yes (Other)
  Sender: FDA-Public Use
  Company Number: PHHY2011US51554

PATIENT
  Age: 49 Year
  Sex: Male
  Weight: 120.6 kg

DRUGS (3)
  1. HYDREA [Concomitant]
  2. TASIGNA [Suspect]
     Indication: MYELOID LEUKAEMIA
     Dosage: 300 MG, BID, ORAL
     Route: 048
     Dates: start: 20110501
  3. VITAMIN D [Concomitant]

REACTIONS (1)
  - FATIGUE [None]
